FAERS Safety Report 5511624-2 (Version None)
Quarter: 2007Q4

REPORT INFORMATION
  Report Type: 
  Country: None (occurrence: None)
  Receive Date: 20071109
  Receipt Date: 20071029
  Transmission Date: 20080405
  Serious: Yes (Hospitalization, Other)
  Sender: FDA-Public Use
  Company Number: DK-PFIZER INC-2007091374

PATIENT
  Sex: Male

DRUGS (1)
  1. ZELDOX (CAPSULES) [Suspect]
     Indication: SCHIZOPHRENIA
     Dosage: TEXT:60 TO 80 MG DAILY
     Route: 048

REACTIONS (4)
  - HALLUCINATION [None]
  - LOWER LIMB FRACTURE [None]
  - PELVIC FRACTURE [None]
  - PSYCHOTIC DISORDER [None]
